FAERS Safety Report 13344578 (Version 2)
Quarter: 2017Q1

REPORT INFORMATION
  Report Type: Spontaneous
  Country: DE (occurrence: DE)
  Receive Date: 20170317
  Receipt Date: 20170321
  Transmission Date: 20170428
  Serious: Yes (Other)
  Sender: FDA-Public Use
  Company Number: DE-BEH-2017078860

PATIENT
  Age: 2 Year
  Sex: Male
  Weight: 14 kg

DRUGS (5)
  1. IDELVION [Suspect]
     Active Substance: COAGULATION FACTOR IX RECOMBINANT HUMAN
     Dosage: 100 IU/KG, UNK, FOR FIX ACTIVITY MEASUREMENT
     Route: 042
  2. IDELVION [Suspect]
     Active Substance: COAGULATION FACTOR IX RECOMBINANT HUMAN
     Indication: FACTOR IX DEFICIENCY
     Dosage: 250 IU, UNK, 11 TOTAL EDS
     Route: 042
     Dates: start: 20160725
  3. IDELVION [Suspect]
     Active Substance: COAGULATION FACTOR IX RECOMBINANT HUMAN
     Indication: COAGULATION FACTOR IX LEVEL
     Dosage: 250 IU, QW, 11 TOTAL EDS
     Route: 042
     Dates: start: 20161017
  4. IDELVION [Suspect]
     Active Substance: COAGULATION FACTOR IX RECOMBINANT HUMAN
     Dosage: 500 IU, QW, 6 TOTAL EDS
     Route: 042
     Dates: start: 20170116
  5. IDELVION [Suspect]
     Active Substance: COAGULATION FACTOR IX RECOMBINANT HUMAN
     Dosage: 500 IU, QW, 2 TOTAL EDS
     Route: 042
     Dates: start: 20170109

REACTIONS (2)
  - Factor IX inhibition [Not Recovered/Not Resolved]
  - Haematoma [Recovering/Resolving]

NARRATIVE: CASE EVENT DATE: 20170308
